FAERS Safety Report 14615093 (Version 1)
Quarter: 2018Q1

REPORT INFORMATION
  Report Type: Spontaneous
  Country: FR (occurrence: FR)
  Receive Date: 20180308
  Receipt Date: 20180308
  Transmission Date: 20180509
  Serious: Yes (Other)
  Sender: FDA-Public Use
  Company Number: FR-HERITAGE PHARMACEUTICALS-2018HTG00046

PATIENT
  Age: 59 Year
  Sex: Male

DRUGS (1)
  1. LEFLUNOMIDE. [Suspect]
     Active Substance: LEFLUNOMIDE
     Indication: CONNECTIVE TISSUE DISORDER
     Dosage: 20 MG, 1X/DAY
     Route: 065

REACTIONS (2)
  - Cardiac failure [Recovering/Resolving]
  - Pulmonary arterial hypertension [Unknown]
